FAERS Safety Report 8396243-5 (Version None)
Quarter: 2012Q2

REPORT INFORMATION
  Report Type: 
  Country: None (occurrence: None)
  Receive Date: 20120530
  Receipt Date: 20120515
  Transmission Date: 20120825
  Serious: Yes (Other)
  Sender: FDA-Public Use
  Company Number: GB-ROCHE-1070193

PATIENT
  Sex: Female

DRUGS (3)
  1. HERCEPTIN [Suspect]
     Indication: PRODUCT USED FOR UNKNOWN INDICATION
  2. CITALOPRAM HYDROBROMIDE [Concomitant]
  3. CITALOPRAM HYDROBROMIDE [Concomitant]

REACTIONS (5)
  - ARTHRALGIA [None]
  - HYPOAESTHESIA [None]
  - TREMOR [None]
  - HEADACHE [None]
  - CONSTIPATION [None]
